FAERS Safety Report 7796795-X (Version None)
Quarter: 2011Q4

REPORT INFORMATION
  Report Type: 
  Country: None (occurrence: None)
  Receive Date: 20111005
  Receipt Date: 20110926
  Transmission Date: 20120403
  Serious: Yes (Other)
  Sender: FDA-Public Use
  Company Number: GB-JNJFOC-20110909849

PATIENT
  Sex: Female

DRUGS (1)
  1. STELARA [Suspect]
     Indication: PSORIASIS
     Route: 058

REACTIONS (8)
  - DYSPNOEA [None]
  - REBOUND PSORIASIS [None]
  - HYPERHIDROSIS [None]
  - FATIGUE [None]
  - CHEST DISCOMFORT [None]
  - DYSPHONIA [None]
  - PARAESTHESIA ORAL [None]
  - OEDEMA PERIPHERAL [None]
